FAERS Safety Report 10949789 (Version 1)
Quarter: 2015Q1

REPORT INFORMATION
  Report Type: Spontaneous
  Country: US (occurrence: None)
  Receive Date: 20150323
  Receipt Date: 20150323
  Transmission Date: 20150721
  Serious: Yes (Life-Threatening, Disabling)
  Sender: FDA-Public Use
  Company Number: None

PATIENT
  Age: 68 Year
  Sex: Female
  Weight: 71.22 kg

DRUGS (4)
  1. LOSARTAN [Suspect]
     Active Substance: LOSARTAN
     Indication: HYPERTENSION
     Dosage: 1.5 PILLS
     Route: 048
  2. METFORMIN [Suspect]
     Active Substance: METFORMIN HYDROCHLORIDE
  3. VITAMIN D3/CALCIUM [Concomitant]
  4. ASPRIN [Concomitant]
     Active Substance: ASPIRIN

REACTIONS (18)
  - Gait disturbance [None]
  - Tremor [None]
  - Muscle spasms [None]
  - Nausea [None]
  - Eye disorder [None]
  - Paraesthesia [None]
  - Hypoaesthesia oral [None]
  - Dyspnoea [None]
  - Blood pressure increased [None]
  - Feeling of body temperature change [None]
  - Paraesthesia oral [None]
  - Feeling abnormal [None]
  - Cough [None]
  - Dizziness [None]
  - Hot flush [None]
  - Metamorphopsia [None]
  - Fatigue [None]
  - Ageusia [None]

NARRATIVE: CASE EVENT DATE: 20150130
